FAERS Safety Report 5636389-5 (Version None)
Quarter: 2008Q1

REPORT INFORMATION
  Report Type: 
  Country: None (occurrence: None)
  Receive Date: 20080225
  Receipt Date: 20071116
  Transmission Date: 20080703
  Serious: No
  Sender: FDA-Public Use
  Company Number: A0695866A

PATIENT
  Age: 87 Year
  Sex: Male

DRUGS (1)
  1. VERAMYST [Suspect]
     Route: 065
     Dates: start: 20071001

REACTIONS (2)
  - DRUG INEFFECTIVE [None]
  - OFF LABEL USE [None]
